FAERS Safety Report 10142993 (Version 2)
Quarter: 2014Q2

REPORT INFORMATION
  Report Type: Spontaneous
  Country: US (occurrence: None)
  Receive Date: 20140428
  Receipt Date: 20140612
  Transmission Date: 20141212
  Serious: Yes (Hospitalization)
  Sender: FDA-Public Use
  Company Number: VAL_03073_2014

PATIENT
  Age: 24 Month
  Sex: Male

DRUGS (1)
  1. METHERGIN [Suspect]
     Indication: PRODUCT USED FOR UNKNOWN INDICATION
     Dosage: 1 DF 1X [DF, NOT THE PRESCRIBED AMOUNT] ORAL])
     Route: 048

REACTIONS (10)
  - Lethargy [None]
  - Accidental exposure to product by child [None]
  - Pallor [None]
  - Peripheral vascular disorder [None]
  - Exposure via ingestion [None]
  - Depressed level of consciousness [None]
  - Hypoxia [None]
  - Poisoning [None]
  - Oxygen saturation decreased [None]
  - Vasospasm [None]
